FAERS Safety Report 4337677-5 (Version None)
Quarter: 2004Q2

REPORT INFORMATION
  Report Type: 
  Country: None (occurrence: None)
  Receive Date: 20040407
  Receipt Date: 20040325
  Transmission Date: 20050107
  Serious: Yes (Hospitalization)
  Sender: FDA-Public Use
  Company Number: GB-JNJFOC-20040305545

PATIENT
  Age: 42 Year
  Sex: Female

DRUGS (10)
  1. REMICADE [Suspect]
     Indication: RHEUMATOID ARTHRITIS
     Dosage: 250 MG, INTRAVENOUS
     Route: 042
     Dates: start: 20030930
  2. METHOTREXATE [Concomitant]
  3. FOLIC AICD (FOLIC ACID) [Concomitant]
  4. CALCIHEW (CALCIUM CARBONATE) [Concomitant]
  5. DECLOFENAC (DICLOFENAC) [Concomitant]
  6. SULPHASALZINE (SULFASALAZINE) [Concomitant]
  7. HYDROXYCHLOROQUINE SULFATE [Concomitant]
  8. PREDNISONE [Concomitant]
  9. FERROUS GLUCONATE (FERROUS GLUCONATE) [Concomitant]
  10. MULTIVITAMIN [Concomitant]

REACTIONS (1)
  - UTERINE LEIOMYOMA [None]
